FAERS Safety Report 7621000-4 (Version None)
Quarter: 2011Q3

REPORT INFORMATION
  Report Type: 
  Country: None (occurrence: None)
  Receive Date: 20110719
  Receipt Date: 20100628
  Transmission Date: 20111222
  Serious: No
  Sender: FDA-Public Use
  Company Number: US-KINGPHARMUSA00001-K201000831

PATIENT
  Age: 49 Week
  Sex: Female
  Weight: 70.295 kg

DRUGS (9)
  1. LEVOXYL [Suspect]
     Dosage: 100 MCG, 5X/W + 150 MCG, BIW
  2. LEVOXYL [Suspect]
     Dosage: 100 MCG, QD
     Route: 048
     Dates: start: 20100101, end: 20100101
  3. SLEEP AID [Concomitant]
     Dosage: UNK
  4. CHOLESTEROL- AND TRIGLYCERIDE REDUCERS [Concomitant]
     Indication: BLOOD CHOLESTEROL INCREASED
     Dosage: UNK
     Dates: end: 20100101
  5. ANTIHISTAMINES [Concomitant]
  6. IMMUNOSUPPRESSANTS [Concomitant]
  7. LEVOXYL [Suspect]
     Dosage: UNK
     Route: 048
  8. LEVOXYL [Suspect]
     Indication: HYPOTHYROIDISM
     Dosage: 100 MCG, QD
     Route: 048
     Dates: start: 20091101, end: 20100101
  9. CYCLOSPORINE [Concomitant]
     Dosage: UNK
     Dates: start: 20100301

REACTIONS (6)
  - RASH GENERALISED [None]
  - RASH PRURITIC [None]
  - ALLERGY TO CHEMICALS [None]
  - DECREASED ACTIVITY [None]
  - REACTION TO FOOD ADDITIVE [None]
  - WEIGHT INCREASED [None]
